FAERS Safety Report 6203227-1 (Version None)
Quarter: 2009Q2

REPORT INFORMATION
  Report Type: 
  Country: None (occurrence: None)
  Receive Date: 20090521
  Receipt Date: 20090512
  Transmission Date: 20091009
  Serious: Yes (Other)
  Sender: FDA-Public Use
  Company Number: 270089

PATIENT
  Age: 60 Year
  Sex: Female

DRUGS (6)
  1. EPIRUBICIN [Suspect]
     Indication: METASTASES TO BONE
     Dosage: (PER CYCLE)
  2. METHOTREXATE [Suspect]
     Indication: BREAST CANCER
     Dosage: (PER CYCLE, 6 CYCLES)
  3. (PACLITAXEL) [Suspect]
     Indication: METASTASES TO BONE
     Dosage: (PER CYCLE )
  4. FLUOROURACIL [Suspect]
     Indication: BREAST CANCER
     Dosage: (PER CYCLE, 6 CYCLES )
  5. CYCLOPHOSPHAMIDE [Suspect]
     Indication: BREAST CANCER
     Dosage: (PER CYCLE, 6 CYCLES )
  6. (THERAPEUTIC RADIOPHARMACEUTICALS) [Suspect]
     Indication: BREAST CANCER

REACTIONS (6)
  - ACUTE LYMPHOCYTIC LEUKAEMIA [None]
  - HAEMATOCRIT DECREASED [None]
  - HAEMOGLOBIN DECREASED [None]
  - METASTASES TO LIVER [None]
  - PLATELET COUNT DECREASED [None]
  - REFUSAL OF TREATMENT BY PATIENT [None]
